FAERS Safety Report 14139390 (Version 3)
Quarter: 2021Q1

REPORT INFORMATION
  Report Type: Spontaneous
  Country: US (occurrence: US)
  Receive Date: 20171028
  Receipt Date: 20210319
  Transmission Date: 20210419
  Serious: Yes (Other)
  Sender: FDA-Public Use
  Company Number: US-AUROBINDO-AUR-APL-2017-42705

PATIENT
  Age: 62 Year
  Sex: Male

DRUGS (3)
  1. SILDENAFIL. [Suspect]
     Active Substance: SILDENAFIL
     Indication: ERECTILE DYSFUNCTION
  2. SILDENAFIL. [Suspect]
     Active Substance: SILDENAFIL
     Indication: GENITAL HERPES SIMPLEX
     Dosage: UNK
     Route: 065
  3. ZOLPIDEM [Suspect]
     Active Substance: ZOLPIDEM TARTRATE
     Indication: INSOMNIA
     Dosage: UNK
     Route: 065

REACTIONS (6)
  - Delirium [Recovering/Resolving]
  - Herpes simplex encephalitis [Recovering/Resolving]
  - Pyrexia [Recovering/Resolving]
  - Seizure [Recovering/Resolving]
  - Confusional state [Recovering/Resolving]
  - Altered state of consciousness [Recovering/Resolving]
